FAERS Safety Report 4525424-3 (Version None)
Quarter: 2004Q4

REPORT INFORMATION
  Report Type: 
  Country: None (occurrence: None)
  Receive Date: 20041213
  Receipt Date: 20041206
  Transmission Date: 20050328
  Serious: Yes (Hospitalization)
  Sender: FDA-Public Use
  Company Number: FR-GLAXOSMITHKLINE-B0359139A

PATIENT
  Age: 62 Year
  Sex: Male

DRUGS (3)
  1. AVODART [Suspect]
     Indication: BENIGN PROSTATIC HYPERPLASIA
     Dosage: .5MG PER DAY
     Route: 048
  2. JOSIR [Concomitant]
     Indication: BENIGN PROSTATIC HYPERPLASIA
  3. TROSPIUM CHLORIDE [Concomitant]

REACTIONS (1)
  - DYSURIA [None]
